FAERS Safety Report 9348676 (Version 1)
Quarter: 2013Q2

REPORT INFORMATION
  Report Type: Spontaneous
  Country: FR (occurrence: FR)
  Receive Date: 20130614
  Receipt Date: 20130614
  Transmission Date: 20140414
  Serious: Yes (Disabling)
  Sender: FDA-Public Use
  Company Number: FR-TEVA-412246ISR

PATIENT
  Sex: Female

DRUGS (3)
  1. FUROSEMIDE TEVA 40 MG [Suspect]
     Indication: OEDEMA
     Dates: start: 20130511, end: 201305
  2. FUROSEMIDE TEVA 40 MG [Suspect]
     Indication: FLUID RETENTION
  3. UTROGESTAN [Concomitant]

REACTIONS (3)
  - Somnolence [Not Recovered/Not Resolved]
  - Nausea [Not Recovered/Not Resolved]
  - Vertigo [Not Recovered/Not Resolved]
